FAERS Safety Report 7277422-7 (Version None)
Quarter: 2011Q1

REPORT INFORMATION
  Report Type: 
  Country: None (occurrence: None)
  Receive Date: 20110207
  Receipt Date: 20110131
  Transmission Date: 20110831
  Serious: Yes (Hospitalization, Other)
  Sender: FDA-Public Use
  Company Number: US-TYCO HEALTHCARE/MALLINCKRODT-T201001752

PATIENT
  Sex: Female
  Weight: 91 kg

DRUGS (21)
  1. VANCOMYCIN [Concomitant]
     Dosage: UNK
  2. VITAMIN D [Concomitant]
     Dosage: UNK
  3. BONIVA [Concomitant]
     Dosage: UNK
  4. CELEBREX [Concomitant]
     Dosage: UNK
  5. PROAIR HFA [Concomitant]
     Dosage: UNK
  6. CELEXA [Concomitant]
     Dosage: UNK
  7. SODIUM CHLORIDE [Suspect]
     Dosage: 10 ML, SINGLE
     Route: 014
     Dates: start: 20080828, end: 20080828
  8. CLIMARA [Concomitant]
     Dosage: 25 MG
     Route: 062
  9. HYDROCHLOROTHIAZIDE [Concomitant]
     Dosage: UNK
  10. CLONIDINE [Concomitant]
     Dosage: UNK
  11. MAGNEVIST [Suspect]
     Indication: ARTHROGRAM
     Dosage: 1 ML, SINGLE
     Route: 014
     Dates: start: 20080828, end: 20080828
  12. LIDOCAINE [Suspect]
     Dosage: 5 ML, SINGLE
     Route: 014
     Dates: start: 20080828, end: 20080828
  13. AYGESTIN [Concomitant]
     Dosage: UNK
  14. OPTIRAY 350 [Suspect]
     Dosage: 5-10 ML
     Route: 014
     Dates: start: 20080828, end: 20080828
  15. RELPAX [Concomitant]
     Dosage: UNK
  16. NIFEDIPINE [Concomitant]
     Dosage: UNK
  17. HYDROQUINONE [Concomitant]
     Dosage: UNK
  18. FAMOTIDINE [Concomitant]
     Dosage: UNK
  19. ATENOLOL [Concomitant]
     Dosage: UNK
  20. SIMVASTATIN [Concomitant]
     Dosage: UNK
  21. ONDANSETRON [Concomitant]
     Dosage: UNK

REACTIONS (7)
  - RENAL FAILURE ACUTE [None]
  - ABDOMINAL PAIN UPPER [None]
  - SEPTIC ARTHRITIS STAPHYLOCOCCAL [None]
  - OFF LABEL USE [None]
  - RENAL TUBULAR NECROSIS [None]
  - WRONG TECHNIQUE IN DRUG USAGE PROCESS [None]
  - INCORRECT ROUTE OF DRUG ADMINISTRATION [None]
